FAERS Safety Report 10908367 (Version 1)
Quarter: 2015Q1

REPORT INFORMATION
  Report Type: Spontaneous
  Country: GB (occurrence: None)
  Receive Date: 20150309
  Receipt Date: 20150309
  Transmission Date: 20150721
  Serious: Yes (Disabling, Other)
  Sender: FDA-Public Use
  Company Number: 2015COV00046

PATIENT
  Age: 29 Year
  Sex: Female

DRUGS (3)
  1. FOLIC ACID. [Concomitant]
     Active Substance: FOLIC ACID
  2. VITAMIN B12 [Concomitant]
     Active Substance: CYANOCOBALAMIN
  3. HYDROXYCHLOROQUINE [Suspect]
     Active Substance: HYDROXYCHLOROQUINE
     Indication: SYSTEMIC LUPUS ERYTHEMATOSUS
     Route: 048

REACTIONS (8)
  - Blood potassium decreased [None]
  - Fatigue [None]
  - Dyspnoea [None]
  - Activities of daily living impaired [None]
  - Pain in extremity [None]
  - Abnormal loss of weight [None]
  - Renal disorder [None]
  - Asthenia [None]
